FAERS Safety Report 7623512-6 (Version None)
Quarter: 2011Q3

REPORT INFORMATION
  Report Type: 
  Country: None (occurrence: None)
  Receive Date: 20110720
  Receipt Date: 20110705
  Transmission Date: 20111222
  Serious: Yes (Hospitalization)
  Sender: FDA-Public Use
  Company Number: RU-SANOFI-AVENTIS-2011SA044156

PATIENT
  Age: 80 Year
  Sex: Female
  Weight: 75 kg

DRUGS (3)
  1. DRONEDARONE HCL [Suspect]
     Indication: ATRIAL FIBRILLATION
     Route: 048
     Dates: start: 20110202
  2. ASPIRIN [Concomitant]
  3. BISOPROLOL [Concomitant]
     Dates: end: 20110221

REACTIONS (1)
  - BRADYARRHYTHMIA [None]
